FAERS Safety Report 8612947-0 (Version None)
Quarter: 2012Q3

REPORT INFORMATION
  Report Type: 
  Country: None (occurrence: None)
  Receive Date: 20120822
  Receipt Date: 20120809
  Transmission Date: 20120928
  Serious: Yes (Other)
  Sender: FDA-Public Use
  Company Number: CHPA2012US017886

PATIENT
  Age: 73 Year
  Sex: Male

DRUGS (6)
  1. BYSTOLIC [Concomitant]
     Indication: HYPERTENSION
     Dosage: UNK, IN THE EVENING
  2. MAALOX ADV MAXIMUM STRENGTH ANTACID/ANTIGAS [Suspect]
     Indication: ABDOMINAL DISCOMFORT
     Dosage: 2 TSP, UNK
     Route: 048
     Dates: start: 20020101
  3. DRUG THERAPY NOS [Concomitant]
     Dosage: UNK, UNK
     Route: 048
  4. METFORMIN [Concomitant]
     Indication: DIABETES MELLITUS
     Dosage: UNK, UNK
  5. GLYBURIDE [Concomitant]
     Indication: DIABETES MELLITUS
     Dosage: UNK, UNK
  6. LISINOPRIL [Concomitant]
     Indication: HYPERTENSION
     Dosage: UNK, IN THE MORNING

REACTIONS (4)
  - OFF LABEL USE [None]
  - MYOCARDIAL INFARCTION [None]
  - EXPIRED DRUG ADMINISTERED [None]
  - THERAPEUTIC RESPONSE UNEXPECTED [None]
